FAERS Safety Report 16684636 (Version 2)
Quarter: 2020Q2

REPORT INFORMATION
  Report Type: Report from Study
  Country: BR (occurrence: BR)
  Receive Date: 20190808
  Receipt Date: 20200506
  Transmission Date: 20200713
  Serious: Yes (Other)
  Sender: FDA-Public Use
  Company Number: PHHY2019BR182867

PATIENT
  Age: 84 Year
  Sex: Male

DRUGS (7)
  1. ENTRESTO [Suspect]
     Active Substance: SACUBITRIL\VALSARTAN
     Dosage: UNK
     Route: 065
  2. SIMVASTATIN. [Concomitant]
     Active Substance: SIMVASTATIN
     Indication: DIABETES MELLITUS
     Route: 065
  3. GLIFAGE [Concomitant]
     Active Substance: METFORMIN HYDROCHLORIDE
     Indication: DIABETES MELLITUS
     Dosage: UNK
     Route: 065
  4. ENTRESTO [Suspect]
     Active Substance: SACUBITRIL\VALSARTAN
     Indication: PRODUCT USED FOR UNKNOWN INDICATION
     Dosage: 1 DF (24 MG OF SACUBITRIL AND 26 MG OF VALSARTAN), QD
     Route: 065
     Dates: start: 20190626
  5. ENTRESTO [Suspect]
     Active Substance: SACUBITRIL\VALSARTAN
     Dosage: 24 MG OF SACUBITRIL AND 26 MG OF VALSARTAN)
     Route: 065
  6. PIVAST [Concomitant]
     Indication: BLOOD CHOLESTEROL ABNORMAL
     Route: 065
  7. JARDIANCE [Concomitant]
     Active Substance: EMPAGLIFLOZIN
     Indication: DIABETES MELLITUS
     Dosage: 25 MG, QD
     Route: 065

REACTIONS (20)
  - Infarction [Unknown]
  - Hypoaesthesia [Unknown]
  - Decreased appetite [Not Recovered/Not Resolved]
  - Hypotension [Recovering/Resolving]
  - Hypersomnia [Not Recovered/Not Resolved]
  - Prescribed underdose [Unknown]
  - Limb injury [Unknown]
  - Sluggishness [Not Recovered/Not Resolved]
  - Blood glucose increased [Unknown]
  - Gait disturbance [Not Recovered/Not Resolved]
  - Movement disorder [Unknown]
  - Dizziness [Not Recovered/Not Resolved]
  - Inappropriate schedule of product administration [Not Recovered/Not Resolved]
  - Ear haemorrhage [Unknown]
  - Asthenia [Not Recovered/Not Resolved]
  - Fall [Unknown]
  - Renal impairment [Unknown]
  - Head injury [Unknown]
  - Malaise [Unknown]
  - Diarrhoea [Unknown]

NARRATIVE: CASE EVENT DATE: 20190801
